FAERS Safety Report 10354883 (Version 2)
Quarter: 2015Q1

REPORT INFORMATION
  Report Type: Spontaneous
  Country: US (occurrence: US)
  Receive Date: 20140731
  Receipt Date: 20150128
  Transmission Date: 20150720
  Serious: Yes (Hospitalization, Other)
  Sender: FDA-Public Use
  Company Number: US-GLAXOSMITHKLINE-A1082499A

PATIENT
  Sex: Female
  Weight: 83.45 kg

DRUGS (7)
  1. REQUIP [Suspect]
     Active Substance: ROPINIROLE HYDROCHLORIDE
     Indication: RESTLESS LEGS SYNDROME
     Dosage: 1 MG TAB, INCREASING DOSAGE FROM 1 MG DAILY, THEN 1 MG TWICE DAILY, THEN 1 MG THREE TIMES DAILY[...]
     Route: 048
     Dates: end: 201403
  2. REQUIP XL [Suspect]
     Active Substance: ROPINIROLE HYDROCHLORIDE
     Indication: RESTLESS LEGS SYNDROME
     Dosage: 2 MG
     Route: 048
     Dates: start: 201403
  3. LANTUS [Concomitant]
     Active Substance: INSULIN GLARGINE
  4. JANUMET [Concomitant]
     Active Substance: METFORMIN HYDROCHLORIDE\SITAGLIPTIN PHOSPHATE
  5. ROBAXIN [Concomitant]
     Active Substance: METHOCARBAMOL
  6. OXYCODONE [Concomitant]
     Active Substance: OXYCODONE
  7. SIMVASTATIN. [Concomitant]
     Active Substance: SIMVASTATIN

REACTIONS (7)
  - Sedation [Unknown]
  - Restless legs syndrome [Recovering/Resolving]
  - Fall [Recovering/Resolving]
  - Drug ineffective [Unknown]
  - Somnolence [Recovering/Resolving]
  - Femur fracture [Recovering/Resolving]
  - Surgery [Unknown]
